FAERS Safety Report 8874226 (Version 1)
Quarter: 2012Q4

REPORT INFORMATION
  Report Type: 
  Country: DE (occurrence: DE)
  Receive Date: 20121031
  Receipt Date: 20121031
  Transmission Date: 20130627
  Serious: Yes (Other)
  Sender: FDA-Public Use
  Company Number: DE-BRISTOL-MYERS SQUIBB COMPANY-17057381

PATIENT
  Age: 77 Year
  Sex: Male

DRUGS (1)
  1. YERVOY [Suspect]

REACTIONS (1)
  - Hyponatraemia [Unknown]
